FAERS Safety Report 10788997 (Version 1)
Quarter: 2015Q1

REPORT INFORMATION
  Report Type: Report from Study
  Country: DE (occurrence: DE)
  Receive Date: 20150212
  Receipt Date: 20150212
  Transmission Date: 20150721
  Serious: Yes (Hospitalization)
  Sender: FDA-Public Use
  Company Number: DE-ABBVIE-14P-062-1291897-00

PATIENT
  Age: 48 Year
  Sex: Female

DRUGS (4)
  1. PAIN MEDICATION [Concomitant]
     Active Substance: UNSPECIFIED INGREDIENT
     Indication: PRODUCT USED FOR UNKNOWN INDICATION
  2. DUODOPA [Suspect]
     Active Substance: CARBIDOPA\LEVODOPA
     Indication: PARKINSON^S DISEASE
     Dosage: MD 3.0ML, CRD 4.0ML/H, CRN 3.5ML/H, ED 1ML
     Route: 050
     Dates: start: 201201, end: 20141207
  3. GABAPENTIN. [Concomitant]
     Active Substance: GABAPENTIN
     Indication: PRODUCT USED FOR UNKNOWN INDICATION
  4. LEVODOPA [Concomitant]
     Active Substance: LEVODOPA
     Indication: PRODUCT USED FOR UNKNOWN INDICATION
     Dates: start: 1978

REACTIONS (7)
  - Off label use [Unknown]
  - Parkinson^s disease [Recovering/Resolving]
  - Dystonia [Recovering/Resolving]
  - Pain [Unknown]
  - Drug level fluctuating [Recovering/Resolving]
  - Polyneuropathy [Unknown]
  - Adverse drug reaction [Unknown]

NARRATIVE: CASE EVENT DATE: 201212
